FAERS Safety Report 7560782-7 (Version None)
Quarter: 2011Q2

REPORT INFORMATION
  Report Type: 
  Country: None (occurrence: None)
  Receive Date: 20110621
  Receipt Date: 20100528
  Transmission Date: 20111010
  Serious: No
  Sender: FDA-Public Use
  Company Number: US-ASTRAZENECA-2010SE24899

PATIENT
  Age: 87 Year
  Sex: Female

DRUGS (1)
  1. ATACAND [Suspect]
     Route: 048
     Dates: start: 20070101

REACTIONS (2)
  - DRUG DOSE OMISSION [None]
  - CARDIAC DISORDER [None]
